FAERS Safety Report 25612004 (Version 1)
Quarter: 2025Q3

REPORT INFORMATION
  Report Type: Report from Study
  Country: US (occurrence: US)
  Receive Date: 20250728
  Receipt Date: 20250728
  Transmission Date: 20251020
  Serious: Yes (Hospitalization)
  Sender: BAYER HEALTHCARE PHARMACEUTICALS INC.
  Company Number: US-BAYER-2025A078895

PATIENT
  Age: 81 Year
  Sex: Female
  Weight: 93.878 kg

DRUGS (19)
  1. ADEMPAS [Suspect]
     Active Substance: RIOCIGUAT
     Indication: Pulmonary arterial hypertension
     Dosage: 0.5 MG, TID
     Route: 048
     Dates: start: 20250403
  2. ADEMPAS [Suspect]
     Active Substance: RIOCIGUAT
     Indication: Pulmonary arterial hypertension
     Dosage: 1.0 MG, TID
     Route: 048
  3. CARVEDILOL [Concomitant]
     Active Substance: CARVEDILOL
  4. MINERALS\VITAMINS [Concomitant]
     Active Substance: MINERALS\VITAMINS
  5. EZETIMIBE [Concomitant]
     Active Substance: EZETIMIBE
  6. ENTRESTO [Concomitant]
     Active Substance: SACUBITRIL\VALSARTAN
  7. JARDIANCE [Concomitant]
     Active Substance: EMPAGLIFLOZIN
  8. LIVALO [Concomitant]
     Active Substance: PITAVASTATIN CALCIUM
  9. OPSUMIT [Concomitant]
     Active Substance: MACITENTAN
  10. ELIQUIS [Concomitant]
     Active Substance: APIXABAN
  11. SERTRALINE HYDROCHLORIDE [Concomitant]
     Active Substance: SERTRALINE HYDROCHLORIDE
  12. VITAMIN D2 [Concomitant]
     Active Substance: ERGOCALCIFEROL
  13. MAGNESIUM [Concomitant]
     Active Substance: MAGNESIUM
  14. VITAMIN C [Concomitant]
     Active Substance: ASCORBIC ACID
  15. ASPIRIN [Concomitant]
     Active Substance: ASPIRIN
  16. OZEMPIC [Suspect]
     Active Substance: SEMAGLUTIDE
  17. VITAMIN D3 [Concomitant]
     Active Substance: CHOLECALCIFEROL
  18. Centrum adults [Concomitant]
  19. SPIRONOLACTONE [Concomitant]
     Active Substance: SPIRONOLACTONE

REACTIONS (2)
  - Gastrointestinal disorder [None]
  - Diarrhoea [None]

NARRATIVE: CASE EVENT DATE: 20250601
